FAERS Safety Report 7790063-8 (Version None)
Quarter: 2011Q3

REPORT INFORMATION
  Report Type: 
  Country: None (occurrence: None)
  Receive Date: 20110930
  Receipt Date: 20101109
  Transmission Date: 20111222
  Serious: No
  Sender: FDA-Public Use
  Company Number: US-ASTRAZENECA-2010SE42347

PATIENT
  Sex: Female

DRUGS (2)
  1. ARIMIDEX [Suspect]
     Route: 048
  2. ARIMIDEX [Suspect]
     Route: 048

REACTIONS (9)
  - OROPHARYNGEAL PAIN [None]
  - DIARRHOEA [None]
  - HEADACHE [None]
  - PRURITUS [None]
  - ABDOMINAL DISCOMFORT [None]
  - DRUG INTOLERANCE [None]
  - MALAISE [None]
  - VOMITING [None]
  - HYPERHIDROSIS [None]
